FAERS Safety Report 5368425-8 (Version None)
Quarter: 2007Q2

REPORT INFORMATION
  Report Type: 
  Country: None (occurrence: None)
  Receive Date: 20070620
  Receipt Date: 20070605
  Transmission Date: 20071010
  Serious: Yes (Hospitalization)
  Sender: FDA-Public Use
  Company Number: 2007RR-07981

PATIENT
  Age: 61 Year
  Sex: Female

DRUGS (5)
  1. METFORMIN (METFORMIN) UNKNOWN [Suspect]
     Indication: DIABETES MELLITUS NON-INSULIN-DEPENDENT
     Dosage: 1 G, BID, ORAL
     Route: 048
  2. ROFECOXIB [Suspect]
     Indication: PAIN
     Dosage: 2.5 MG, BID, ORAL
     Route: 048
  3. FURSEMIDE (FUROSEMIDE) [Concomitant]
  4. RAMIPRIL [Concomitant]
  5. ACENOCOUMARIN [Concomitant]

REACTIONS (8)
  - CONTINUOUS HAEMODIAFILTRATION [None]
  - DRUG INTERACTION [None]
  - GINGIVAL BLEEDING [None]
  - LACTIC ACIDOSIS [None]
  - PROTHROMBIN TIME PROLONGED [None]
  - RENAL FAILURE [None]
  - RESPIRATORY DISTRESS [None]
  - TACHYCARDIA [None]
